FAERS Safety Report 12227565 (Version 1)
Quarter: 2016Q1

REPORT INFORMATION
  Report Type: Spontaneous
  Country: US (occurrence: US)
  Receive Date: 20160331
  Receipt Date: 20160331
  Transmission Date: 20160526
  Serious: Yes (Hospitalization)
  Sender: FDA-Public Use
  Company Number: US-VERTEX PHARMACEUTICALS-2016-002006

PATIENT
  Sex: Male

DRUGS (18)
  1. DOXYCYCLINE. [Concomitant]
     Active Substance: DOXYCYCLINE
  2. ORKAMBI [Suspect]
     Active Substance: IVACAFTOR\LUMACAFTOR
     Indication: CYSTIC FIBROSIS
     Dosage: 400-250MG, BID
     Route: 048
     Dates: start: 201511
  3. TRAZODONE [Concomitant]
     Active Substance: TRAZODONE HYDROCHLORIDE
  4. HYPERTONIC SALINE [Concomitant]
  5. NYSTATIN. [Concomitant]
     Active Substance: NYSTATIN
  6. AZELASTIN [Concomitant]
  7. FLONASE [Concomitant]
     Active Substance: FLUTICASONE PROPIONATE
  8. METHOCARBAMOL. [Concomitant]
     Active Substance: METHOCARBAMOL
  9. MIRALAX [Concomitant]
     Active Substance: POLYETHYLENE GLYCOL 3350
  10. AZITHROMYCIN ANHYDROUS. [Concomitant]
     Active Substance: AZITHROMYCIN ANHYDROUS
  11. MULTIVITAMINS [Concomitant]
     Active Substance: VITAMINS
  12. PULMOZYME [Concomitant]
     Active Substance: DORNASE ALFA
  13. ALBUTEROL. [Concomitant]
     Active Substance: ALBUTEROL
  14. LANTUS [Concomitant]
     Active Substance: INSULIN GLARGINE
  15. COLACE [Concomitant]
     Active Substance: DOCUSATE SODIUM
  16. VITAMIN A [Concomitant]
     Active Substance: VITAMIN A
  17. CREON [Concomitant]
     Active Substance: PANCRELIPASE AMYLASE\PANCRELIPASE LIPASE\PANCRELIPASE PROTEASE
  18. HUMALOG [Concomitant]
     Active Substance: INSULIN LISPRO

REACTIONS (2)
  - Infective pulmonary exacerbation of cystic fibrosis [Unknown]
  - Infection [Unknown]
